FAERS Safety Report 18479306 (Version 2)
Quarter: 2021Q3

REPORT INFORMATION
  Report Type: Spontaneous
  Country: DE (occurrence: DE)
  Receive Date: 20201109
  Receipt Date: 20210816
  Transmission Date: 20211014
  Serious: Yes (Other)
  Sender: FDA-Public Use
  Company Number: DE-AUROBINDO-AUR-APL-2020-054942

PATIENT
  Age: 79 Year
  Sex: Male

DRUGS (6)
  1. BISOPROLOL [Suspect]
     Active Substance: BISOPROLOL
     Indication: CARDIAC FAILURE
     Dosage: 5 MILLIGRAM ?0? 7.5 MG
     Route: 065
     Dates: start: 202007
  2. MOXONIDINE [Suspect]
     Active Substance: MOXONIDINE
     Indication: CARDIAC FAILURE
     Dosage: UNK UNK, TWO TIMES A DAY1?0?1
     Route: 065
     Dates: start: 202007
  3. RIVAROXABAN [Suspect]
     Active Substance: RIVAROXABAN
     Indication: CARDIAC FAILURE
     Dosage: 20 MILLIGRAM, ONCE A DAY (1?0?0)
     Route: 065
     Dates: start: 202007
  4. TELMISARTAN. [Suspect]
     Active Substance: TELMISARTAN
     Indication: CARDIAC FAILURE
     Dosage: 20 MILLIGRAM, ONCE A DAY (1?0?0)
     Route: 065
     Dates: start: 202007
  5. FINASTERIDE. [Suspect]
     Active Substance: FINASTERIDE
     Indication: CARDIAC FAILURE
     Dosage: 5 MILLIGRAM, ONCE A DAY (0?0?1)
     Route: 065
     Dates: start: 202007
  6. TORASEMIDE [Suspect]
     Active Substance: TORSEMIDE
     Indication: CARDIAC FAILURE
     Dosage: 10 MILLIGRAM, ONCE A DAY (1?0?0)
     Route: 065
     Dates: start: 202007

REACTIONS (9)
  - Limb discomfort [Not Recovered/Not Resolved]
  - Pulmonary oedema [Unknown]
  - Angina pectoris [Not Recovered/Not Resolved]
  - Panic attack [Not Recovered/Not Resolved]
  - Listless [Not Recovered/Not Resolved]
  - Dyspnoea [Not Recovered/Not Resolved]
  - Drug interaction [Not Recovered/Not Resolved]
  - Asthenia [Not Recovered/Not Resolved]
  - Apathy [Unknown]

NARRATIVE: CASE EVENT DATE: 2020
